FAERS Safety Report 22384393 (Version 1)
Quarter: 2023Q2

REPORT INFORMATION
  Report Type: Spontaneous
  Country: CA (occurrence: CA)
  Receive Date: 20230530
  Receipt Date: 20230530
  Transmission Date: 20230722
  Serious: Yes (Death)
  Sender: FDA-Public Use
  Company Number: CA-FreseniusKabi-FK202306997

PATIENT

DRUGS (18)
  1. FENTANYL [Suspect]
     Active Substance: FENTANYL
     Indication: Depression
     Route: 065
  2. FENTANYL [Suspect]
     Active Substance: FENTANYL
     Indication: Bipolar disorder
     Dosage: NOT SPECIFIED- DOSAGE FORM
     Route: 065
  3. FENTANYL [Suspect]
     Active Substance: FENTANYL
     Indication: Anxiety
     Route: 065
  4. COCAINE [Suspect]
     Active Substance: COCAINE
     Indication: Depression
     Dosage: NOT SPECIFIED- DOSAGE FORM
  5. COCAINE [Suspect]
     Active Substance: COCAINE
     Indication: Bipolar disorder
     Dosage: 2 REGIMEN
  6. COCAINE [Suspect]
     Active Substance: COCAINE
     Indication: Anxiety
  7. ALCOHOL [Suspect]
     Active Substance: ALCOHOL
     Indication: Depression
     Dosage: 3 REGIMEN
     Route: 065
  8. ALCOHOL [Suspect]
     Active Substance: ALCOHOL
     Indication: Bipolar disorder
  9. ALCOHOL [Suspect]
     Active Substance: ALCOHOL
     Indication: Anxiety
  10. QUETIAPINE FUMARATE [Suspect]
     Active Substance: QUETIAPINE FUMARATE
     Indication: Depression
     Dosage: TABLET?3 REGIMEN
     Route: 065
  11. QUETIAPINE FUMARATE [Suspect]
     Active Substance: QUETIAPINE FUMARATE
     Indication: Bipolar disorder
  12. QUETIAPINE FUMARATE [Suspect]
     Active Substance: QUETIAPINE FUMARATE
     Indication: Anxiety
  13. TRAZODONE [Suspect]
     Active Substance: TRAZODONE HYDROCHLORIDE
     Indication: Depression
     Dosage: TABLETS?3 REGIMEN
     Route: 065
  14. TRAZODONE [Suspect]
     Active Substance: TRAZODONE HYDROCHLORIDE
     Indication: Bipolar disorder
  15. TRAZODONE [Suspect]
     Active Substance: TRAZODONE HYDROCHLORIDE
     Indication: Anxiety
  16. VENLAFAXINE HYDROCHLORIDE [Suspect]
     Active Substance: VENLAFAXINE HYDROCHLORIDE
     Indication: Depression
     Dosage: 3 REGIMEN
     Route: 065
  17. VENLAFAXINE HYDROCHLORIDE [Suspect]
     Active Substance: VENLAFAXINE HYDROCHLORIDE
     Indication: Bipolar disorder
  18. VENLAFAXINE HYDROCHLORIDE [Suspect]
     Active Substance: VENLAFAXINE HYDROCHLORIDE
     Indication: Anxiety

REACTIONS (5)
  - Alcohol test positive [Fatal]
  - Toxicity to various agents [Fatal]
  - Toxicologic test abnormal [Fatal]
  - Opiates positive [Fatal]
  - Drug abuse [Fatal]
